FAERS Safety Report 9559468 (Version 1)
Quarter: 2013Q3

REPORT INFORMATION
  Report Type: Spontaneous
  Country: US (occurrence: None)
  Receive Date: 20130913
  Receipt Date: 20130913
  Transmission Date: 20140515
  Serious: No
  Sender: FDA-Public Use
  Company Number: 1000045267

PATIENT
  Age: 83 Year
  Sex: Male

DRUGS (2)
  1. DALIRESP [Suspect]
     Indication: CHRONIC OBSTRUCTIVE PULMONARY DISEASE
     Route: 048
     Dates: start: 201304
  2. OXYGEN (OXYGEN) (OXYGEN) [Concomitant]

REACTIONS (2)
  - Productive cough [None]
  - Rhinorrhoea [None]
